FAERS Safety Report 7392075-5 (Version None)
Quarter: 2011Q2

REPORT INFORMATION
  Report Type: 
  Country: None (occurrence: None)
  Receive Date: 20110404
  Receipt Date: 20110325
  Transmission Date: 20111010
  Serious: Yes (Congenital Anomaly)
  Sender: FDA-Public Use
  Company Number: A0685067A

PATIENT
  Sex: Male
  Weight: 3.9 kg

DRUGS (2)
  1. PAXIL [Suspect]
     Indication: ANXIETY
     Dosage: 20MG PER DAY
     Route: 064
     Dates: start: 20010101, end: 20030201
  2. PRENATAL VITAMINS [Concomitant]
     Route: 064
     Dates: start: 20030101, end: 20030101

REACTIONS (2)
  - DRUG EXPOSURE DURING PREGNANCY [None]
  - WOLFF-PARKINSON-WHITE SYNDROME [None]
